FAERS Safety Report 10273511 (Version 4)
Quarter: 2014Q3

REPORT INFORMATION
  Report Type: Spontaneous
  Country: GB (occurrence: None)
  Receive Date: 20140630
  Receipt Date: 20140822
  Transmission Date: 20150326
  Serious: Yes (Hospitalization, Other)
  Sender: FDA-Public Use
  Company Number: AUR-APL-2014-06815

PATIENT
  Sex: Female

DRUGS (3)
  1. VALSARTAN  (VALSARTAN) [Suspect]
     Active Substance: VALSARTAN
     Indication: PRODUCT USED FOR UNKNOWN INDICATION
  2. RAMIPRIL. [Suspect]
     Active Substance: RAMIPRIL
     Indication: PRODUCT USED FOR UNKNOWN INDICATION
  3. VALSARTAN. [Suspect]
     Active Substance: VALSARTAN
     Indication: PRODUCT USED FOR UNKNOWN INDICATION
     Dates: start: 20120403, end: 20120430

REACTIONS (25)
  - Discomfort [None]
  - Oedema mouth [None]
  - Alopecia [None]
  - Swollen tongue [None]
  - Feeling abnormal [None]
  - Troponin increased [None]
  - Scab [None]
  - Heart sounds abnormal [None]
  - Weight increased [None]
  - Abdominal discomfort [None]
  - Gastrointestinal oedema [None]
  - Myalgia [None]
  - Tinnitus [None]
  - Chest pain [None]
  - White blood cell count increased [None]
  - Fear [None]
  - Muscle strain [None]
  - Hepatic enzyme increased [None]
  - Restlessness [None]
  - Ear discomfort [None]
  - Cell marker increased [None]
  - Malaise [None]
  - Nasal dryness [None]
  - Tenderness [None]
  - Drug ineffective [None]
